FAERS Safety Report 24965744 (Version 1)
Quarter: 2025Q1

REPORT INFORMATION
  Report Type: Spontaneous
  Country: ES (occurrence: ES)
  Receive Date: 20250213
  Receipt Date: 20250213
  Transmission Date: 20250408
  Serious: Yes (Life-Threatening, Hospitalization, Other)
  Sender: GILEAD
  Company Number: None

PATIENT
  Age: 38 Year
  Sex: Female

DRUGS (1)
  1. YESCARTA [Suspect]
     Active Substance: AXICABTAGENE CILOLEUCEL
     Indication: Mantle cell lymphoma
     Route: 042
     Dates: start: 20240923, end: 20240923

REACTIONS (5)
  - Pancytopenia [Recovering/Resolving]
  - Pulmonary sepsis [Recovered/Resolved]
  - Status epilepticus [Recovered/Resolved]
  - Respiratory failure [Recovered/Resolved]
  - Respiratory tract infection viral [Recovered/Resolved]

NARRATIVE: CASE EVENT DATE: 20241001
